FAERS Safety Report 5762731-0 (Version None)
Quarter: 2008Q2

REPORT INFORMATION
  Report Type: 
  Country: None (occurrence: None)
  Receive Date: 20080527
  Receipt Date: 20071108
  Transmission Date: 20081010
  Serious: Yes (Other)
  Sender: FDA-Public Use
  Company Number: 248979

PATIENT
  Age: 72 Year
  Sex: Female
  Weight: 63.9 kg

DRUGS (3)
  1. HERCEPTIN [Suspect]
     Indication: BREAST CANCER METASTATIC
     Dosage: 130 MG, 1/WEEK, INTRAVENOUS
     Route: 042
     Dates: start: 20070810
  2. TAXOTERE [Concomitant]
  3. XELODA [Concomitant]

REACTIONS (1)
  - PNEUMONITIS [None]
